FAERS Safety Report 7903785-2 (Version None)
Quarter: 2011Q4

REPORT INFORMATION
  Report Type: 
  Country: None (occurrence: None)
  Receive Date: 20111109
  Receipt Date: 20111031
  Transmission Date: 20120403
  Serious: Yes (Other)
  Sender: FDA-Public Use
  Company Number: US-ASTRAZENECA-2009SE06491

PATIENT
  Age: 72 Year
  Sex: Female
  Weight: 58.1 kg

DRUGS (16)
  1. CRESTOR [Suspect]
     Indication: HYPERCHOLESTEROLAEMIA
     Route: 048
     Dates: start: 20090701, end: 20090729
  2. CELEXA [Suspect]
     Indication: DRUG WITHDRAWAL SYNDROME
     Route: 065
  3. XANAX [Suspect]
     Indication: ANXIETY
     Route: 048
     Dates: start: 20100608
  4. XANAX [Suspect]
     Dosage: 3/4 MG DAILY
     Route: 048
  5. NORVASC [Suspect]
     Indication: HYPERTENSION
     Route: 048
     Dates: start: 20100101
  6. LISINOPRIL [Suspect]
     Indication: HYPERTENSION
     Route: 048
  7. METOPROLOL [Suspect]
     Indication: HYPERTENSION
     Route: 048
     Dates: start: 20100101
  8. ZANTAC [Suspect]
     Indication: GASTROOESOPHAGEAL REFLUX DISEASE
     Route: 065
  9. ZANTAC [Suspect]
     Route: 065
  10. NORVASC [Suspect]
     Dosage: 5 MG IN THE MORNING AND HALF OF 5 MG IN THE EVENING
     Route: 048
  11. CATAPRES [Suspect]
     Indication: HYPERTENSION
     Dosage: WEEKLEY
     Route: 065
     Dates: start: 20100101
  12. ASPIRIN [Concomitant]
     Indication: CARDIAC DISORDER
  13. XANAX [Suspect]
     Dosage: 1 AND 1/4 MG DAILY,(BY SPLITTING 1 MG)
     Route: 048
     Dates: start: 20100608
  14. PLAVIX [Suspect]
     Indication: ANTICOAGULANT THERAPY
     Route: 065
  15. CELEXA [Suspect]
     Route: 065
  16. BENICAR [Suspect]
     Indication: HYPERTENSION
     Route: 065
     Dates: start: 20100101

REACTIONS (19)
  - STENT MALFUNCTION [None]
  - DECREASED APPETITE [None]
  - DRUG HYPERSENSITIVITY [None]
  - INCORRECT DOSE ADMINISTERED [None]
  - HYPERTENSION [None]
  - ANXIETY [None]
  - PELVIC PAIN [None]
  - DRY MOUTH [None]
  - TONGUE SPASM [None]
  - IMPAIRED WORK ABILITY [None]
  - BURN OESOPHAGEAL [None]
  - WRONG TECHNIQUE IN DRUG USAGE PROCESS [None]
  - DRUG DEPENDENCE [None]
  - FUNCTIONAL GASTROINTESTINAL DISORDER [None]
  - PELVIC FLOOR MUSCLE WEAKNESS [None]
  - TONGUE DRY [None]
  - HAIR TEXTURE ABNORMAL [None]
  - OESOPHAGEAL DISORDER [None]
  - WEIGHT DECREASED [None]
